FAERS Safety Report 6012541-4 (Version None)
Quarter: 2008Q4

REPORT INFORMATION
  Report Type: 
  Country: None (occurrence: None)
  Receive Date: 20081218
  Receipt Date: 20081204
  Transmission Date: 20090506
  Serious: No
  Sender: FDA-Public Use
  Company Number: US-B.I. PHARMACEUTICALS,INC./RIDGEFIELD-2008-BP-18300BP

PATIENT
  Age: 94 Year
  Sex: Male

DRUGS (4)
  1. FLOMAX [Suspect]
     Indication: POLLAKIURIA
     Dosage: .4MG
     Route: 048
     Dates: start: 20081001
  2. DETROL [Concomitant]
     Indication: POLLAKIURIA
     Dates: start: 20081201
  3. RESTASIS [Concomitant]
     Indication: EYE DISORDER
     Dates: start: 20080101
  4. LUPRON [Concomitant]
     Indication: PROSTATE CANCER
     Dates: start: 20000101

REACTIONS (2)
  - NOCTURIA [None]
  - VISION BLURRED [None]
